FAERS Safety Report 6195504-8 (Version None)
Quarter: 2009Q2

REPORT INFORMATION
  Report Type: 
  Country: None (occurrence: None)
  Receive Date: 20090519
  Receipt Date: 20090507
  Transmission Date: 20091009
  Serious: Yes (Other)
  Sender: FDA-Public Use
  Company Number: PHHY2009BR18465

PATIENT
  Age: 34 Year
  Sex: Female
  Weight: 60 kg

DRUGS (1)
  1. CATAFLAM [Suspect]
     Indication: THROAT IRRITATION
     Dosage: 50 MG, Q8H
     Route: 048
     Dates: start: 20090504, end: 20090506

REACTIONS (13)
  - CHEST PAIN [None]
  - DRUG INEFFECTIVE [None]
  - DYSPHONIA [None]
  - EYE PAIN [None]
  - FATIGUE [None]
  - HEADACHE [None]
  - NASAL DISCOMFORT [None]
  - NECK PAIN [None]
  - ORAL PRURITUS [None]
  - PAIN [None]
  - PHARYNGEAL OEDEMA [None]
  - PRURITUS GENERALISED [None]
  - RESPIRATORY TRACT IRRITATION [None]
